FAERS Safety Report 12507046 (Version 6)
Quarter: 2016Q4

REPORT INFORMATION
  Report Type: Spontaneous
  Country: US (occurrence: US)
  Receive Date: 20160629
  Receipt Date: 20161226
  Transmission Date: 20170207
  Serious: No
  Sender: FDA-Public Use
  Company Number: PHHY2016US087359

PATIENT
  Sex: Female
  Weight: 65.76 kg

DRUGS (3)
  1. ZOFRAN [Suspect]
     Active Substance: ONDANSETRON HYDROCHLORIDE
     Indication: VOMITING IN PREGNANCY
     Route: 048
  2. ONDANSETRON HYDROCHLORIDE. [Suspect]
     Active Substance: ONDANSETRON HYDROCHLORIDE
     Dosage: 8 MG, UNK
     Route: 065
     Dates: start: 20120102, end: 20120202
  3. ONDANSETRON HYDROCHLORIDE. [Suspect]
     Active Substance: ONDANSETRON HYDROCHLORIDE
     Indication: VOMITING IN PREGNANCY
     Dosage: 4 MG, UNK
     Route: 065
     Dates: start: 20111101, end: 20120101

REACTIONS (9)
  - Psoriasis [Unknown]
  - Pruritus [Unknown]
  - Maternal exposure during pregnancy [Unknown]
  - Depression [Unknown]
  - Rash [Unknown]
  - Injury [Unknown]
  - Emotional distress [Unknown]
  - Tinea versicolour [Unknown]
  - Product use issue [Unknown]
